FAERS Safety Report 15488077 (Version 2)
Quarter: 2020Q2

REPORT INFORMATION
  Report Type: Report from Study
  Country: PA (occurrence: PA)
  Receive Date: 20181011
  Receipt Date: 20200422
  Transmission Date: 20200713
  Serious: No
  Sender: FDA-Public Use
  Company Number: PHHY2017PA176652

PATIENT
  Sex: Female

DRUGS (2)
  1. GILENYA [Suspect]
     Active Substance: FINGOLIMOD HYDROCHLORIDE
     Indication: MULTIPLE SCLEROSIS
     Dosage: 0.5 MG, QD
     Route: 048
     Dates: start: 20171115
  2. GILENYA [Suspect]
     Active Substance: FINGOLIMOD HYDROCHLORIDE
     Dosage: 0.5 MG, QD
     Route: 048
     Dates: start: 20180206

REACTIONS (26)
  - Memory impairment [Unknown]
  - Malaise [Unknown]
  - Feeling cold [Unknown]
  - Drug monitoring procedure not performed [Unknown]
  - Hypoaesthesia [Unknown]
  - Tremor [Unknown]
  - Headache [Unknown]
  - Disease progression [Unknown]
  - Somnolence [Unknown]
  - Condition aggravated [Unknown]
  - Pyrexia [Unknown]
  - Muscle spasms [Unknown]
  - Confusional state [Unknown]
  - Stress [Unknown]
  - Distractibility [Unknown]
  - Coordination abnormal [Unknown]
  - Vertigo [Unknown]
  - Cyst [Unknown]
  - Chapped lips [Unknown]
  - Back pain [Unknown]
  - Gait disturbance [Unknown]
  - Insomnia [Unknown]
  - Dizziness [Unknown]
  - Central nervous system lesion [Not Recovered/Not Resolved]
  - Paraesthesia [Unknown]
  - Menorrhagia [Unknown]
